FAERS Safety Report 21403228 (Version 1)
Quarter: 2022Q4

REPORT INFORMATION
  Report Type: Report from Study
  Country: US (occurrence: US)
  Receive Date: 20221003
  Receipt Date: 20221003
  Transmission Date: 20230113
  Serious: Yes (Hospitalization, Other)
  Sender: FDA-Public Use
  Company Number: US-GILEAD-2022-0599563

PATIENT
  Age: 25 Year
  Sex: Male

DRUGS (21)
  1. AZTREONAM LYSINE [Suspect]
     Active Substance: AZTREONAM LYSINE
     Indication: Pseudomonas infection
     Dosage: INHALE THE CONTENTS OF 1 VIAL (75 MG) VIA ALTERA NEBULIZER THREE TIMES A DAY CYCLING 28 DAYS ON AND
     Route: 055
     Dates: start: 201808
  2. TOBI [Concomitant]
     Active Substance: TOBRAMYCIN
  3. CLOBAZAM [Concomitant]
     Active Substance: CLOBAZAM
     Dosage: 10 MG 2 TABBS IN AM AND 2 1/2 TABS IN PM
  4. OMEPRAZOLE [Concomitant]
     Active Substance: OMEPRAZOLE
     Dosage: 20 MG
  5. ZYRTEC [Concomitant]
     Active Substance: CETIRIZINE HYDROCHLORIDE
     Dosage: 10 MG
  6. MOTRIN IB [Concomitant]
     Active Substance: IBUPROFEN
     Dosage: 200 MG
  7. PHENOBARBITAL [Concomitant]
     Active Substance: PHENOBARBITAL
     Dosage: 100 MG
  8. PULMICORT TURBUHALER [Concomitant]
     Active Substance: BUDESONIDE
     Dosage: 0.25MG/2ML
  9. ALBUTEROL SULFATE [Concomitant]
     Active Substance: ALBUTEROL SULFATE
  10. BACLOFEN [Concomitant]
     Active Substance: BACLOFEN
  11. TAILENOL [Concomitant]
     Dosage: 325 MG
  12. CLARITHROMYCIN [Concomitant]
     Active Substance: CLARITHROMYCIN
     Dosage: 10 MG
  13. MIRALAX [Concomitant]
     Active Substance: POLYETHYLENE GLYCOL 3350
  14. MELATONIN;THEANINE [Concomitant]
  15. PROBIOTIC ACIDOPHILUS [LACTOBACILLUS ACIDOPHILUS] [Concomitant]
  16. CLONAZEPAM [Concomitant]
     Active Substance: CLONAZEPAM
  17. KEPPRA [Concomitant]
     Active Substance: LEVETIRACETAM
  18. DIAZEPAM [Concomitant]
     Active Substance: DIAZEPAM
  19. CARAFATE [Concomitant]
     Active Substance: SUCRALFATE
  20. REGLAN [Concomitant]
     Active Substance: METOCLOPRAMIDE HYDROCHLORIDE
  21. FLUTICASONE PROPIONATE\SALMETEROL XINAFOATE [Concomitant]
     Active Substance: FLUTICASONE PROPIONATE\SALMETEROL XINAFOATE

REACTIONS (1)
  - Pneumonia [Unknown]

NARRATIVE: CASE EVENT DATE: 20220920
